FAERS Safety Report 6280590-7 (Version None)
Quarter: 2009Q3

REPORT INFORMATION
  Report Type: 
  Country: None (occurrence: None)
  Receive Date: 20090724
  Receipt Date: 20080926
  Transmission Date: 20100115
  Serious: Yes (Hospitalization)
  Sender: FDA-Public Use
  Company Number: A0748274A

PATIENT
  Age: 50 Year
  Sex: Female
  Weight: 106.8 kg

DRUGS (5)
  1. AVANDIA [Suspect]
     Indication: DIABETES MELLITUS
     Dosage: 4MG PER DAY
     Route: 048
     Dates: start: 20030801, end: 20061001
  2. METFORMIN HCL [Concomitant]
  3. GLUCOTROL [Concomitant]
  4. ZOLOFT [Concomitant]
  5. PAXIL [Concomitant]

REACTIONS (1)
  - UPPER LIMB FRACTURE [None]
